FAERS Safety Report 5076554-1 (Version None)
Quarter: 2006Q3

REPORT INFORMATION
  Report Type: 
  Country: None (occurrence: None)
  Receive Date: 20060810
  Receipt Date: 20060802
  Transmission Date: 20061208
  Serious: Yes (Hospitalization)
  Sender: FDA-Public Use
  Company Number: US-JNJFOC-20060800927

PATIENT
  Sex: Male
  Weight: 86.18 kg

DRUGS (4)
  1. REMICADE [Suspect]
     Indication: RHEUMATOID ARTHRITIS
     Dosage: RECEIVED 7 INFUSIONS ON UNKNOWN DATES
     Route: 042
  2. MOBIC [Concomitant]
  3. PREDNISONE [Concomitant]
  4. ARAVA [Concomitant]
     Indication: RHEUMATOID ARTHRITIS

REACTIONS (1)
  - GASTROINTESTINAL FUNGAL INFECTION [None]
